FAERS Safety Report 8584395-3 (Version None)
Quarter: 2012Q3

REPORT INFORMATION
  Report Type: 
  Country: None (occurrence: None)
  Receive Date: 20120810
  Receipt Date: 20120802
  Transmission Date: 20120928
  Serious: No
  Sender: FDA-Public Use
  Company Number: US-BIOGENIDEC-2012BI029605

PATIENT
  Age: 39 Year
  Sex: Female

DRUGS (2)
  1. AVONEX [Suspect]
     Indication: MULTIPLE SCLEROSIS
     Route: 030
     Dates: start: 20120701, end: 20120722
  2. AVONEX [Suspect]
     Route: 030

REACTIONS (7)
  - INFLUENZA LIKE ILLNESS [None]
  - PAIN [None]
  - SCRATCH [None]
  - INJECTION SITE RASH [None]
  - THROAT IRRITATION [None]
  - INJECTION SITE HAEMATOMA [None]
  - RASH PAPULAR [None]
